FAERS Safety Report 7727766-7 (Version None)
Quarter: 2011Q3

REPORT INFORMATION
  Report Type: 
  Country: None (occurrence: None)
  Receive Date: 20110902
  Receipt Date: 20110829
  Transmission Date: 20111222
  Serious: Yes (Hospitalization, Other)
  Sender: FDA-Public Use
  Company Number: AU-GENENTECH-323668

PATIENT
  Age: 64 Year
  Sex: Male

DRUGS (1)
  1. ACTIVASE [Suspect]
     Indication: RETINAL ARTERY OCCLUSION
     Dosage: 0.9 MG/KG, UNK
     Route: 042

REACTIONS (1)
  - HAEMORRHAGE INTRACRANIAL [None]
